FAERS Safety Report 7606055-5 (Version None)
Quarter: 2011Q3

REPORT INFORMATION
  Report Type: 
  Country: None (occurrence: None)
  Receive Date: 20110705
  Receipt Date: 20110620
  Transmission Date: 20111222
  Serious: Yes (Hospitalization, Other)
  Sender: FDA-Public Use
  Company Number: 2011MA007783

PATIENT
  Age: 48 Year
  Sex: Male

DRUGS (1)
  1. MINOXIDIL EXTRA STRENGTH (FOR MEN) [Suspect]
     Indication: OVERDOSE

REACTIONS (6)
  - HYPOTENSION [None]
  - HEART RATE INCREASED [None]
  - MENTAL STATUS CHANGES [None]
  - TREMOR [None]
  - INTENTIONAL DRUG MISUSE [None]
  - INCORRECT ROUTE OF DRUG ADMINISTRATION [None]
